FAERS Safety Report 4806298-X (Version None)
Quarter: 2005Q4

REPORT INFORMATION
  Report Type: 
  Country: None (occurrence: None)
  Receive Date: 20051021
  Receipt Date: 20050701
  Transmission Date: 20060501
  Serious: Yes (Hospitalization, Disabling, Other)
  Sender: FDA-Public Use
  Company Number: US-MERCK-0507USA00465

PATIENT
  Age: 49 Year
  Sex: Female
  Weight: 59 kg

DRUGS (6)
  1. VIOXX [Suspect]
     Indication: OSTEOARTHRITIS
     Route: 048
     Dates: start: 20000201, end: 20011001
  2. VIOXX [Suspect]
     Route: 048
     Dates: start: 20000201, end: 20011001
  3. PREMARIN [Concomitant]
     Route: 065
     Dates: start: 19960101, end: 20040101
  4. NIACIN [Concomitant]
     Route: 065
  5. PEPCID [Concomitant]
     Route: 065
  6. TENORMIN [Concomitant]
     Indication: HYPERTENSION
     Route: 065

REACTIONS (50)
  - ABDOMINAL PAIN UPPER [None]
  - ABNORMAL SENSATION IN EYE [None]
  - ANAEMIA OF CHRONIC DISEASE [None]
  - ANIMAL BITE [None]
  - ANOREXIA [None]
  - AORTIC VALVE INCOMPETENCE [None]
  - ARRHYTHMIA SUPRAVENTRICULAR [None]
  - ATRIAL FIBRILLATION [None]
  - BLOOD PRESSURE ORTHOSTATIC DECREASED [None]
  - CEREBROVASCULAR ACCIDENT [None]
  - CHEST PAIN [None]
  - CONVULSION [None]
  - DEHYDRATION [None]
  - DEPRESSION [None]
  - DIARRHOEA [None]
  - DIPLOPIA [None]
  - DIZZINESS [None]
  - DRY SKIN [None]
  - DYSPNOEA [None]
  - DYSPNOEA EXERTIONAL [None]
  - EAR INFECTION [None]
  - ENDOCARDITIS BACTERIAL [None]
  - FATIGUE [None]
  - FIBROMYALGIA [None]
  - GASTROENTERITIS [None]
  - GENERALISED OEDEMA [None]
  - HAEMORRHOIDS [None]
  - HEADACHE [None]
  - HYPOKALAEMIA [None]
  - HYPONATRAEMIA [None]
  - HYPOPROTEINAEMIA [None]
  - IIIRD NERVE PARALYSIS [None]
  - LEUKAEMOID REACTION [None]
  - LEUKOCYTOSIS [None]
  - MENINGITIS [None]
  - MENTAL STATUS CHANGES [None]
  - NAUSEA [None]
  - PAIN [None]
  - PAIN IN EXTREMITY [None]
  - PELVIC PAIN [None]
  - PHARYNGITIS [None]
  - PLEURAL EFFUSION [None]
  - PNEUMONIA [None]
  - POLYTRAUMATISM [None]
  - PYREXIA [None]
  - RENAL FAILURE [None]
  - RENAL TUBULAR NECROSIS [None]
  - TENDERNESS [None]
  - THROMBOSIS [None]
  - VISION BLURRED [None]
